FAERS Safety Report 11808476 (Version 1)
Quarter: 2015Q4

REPORT INFORMATION
  Report Type: Spontaneous
  Country: US (occurrence: US)
  Receive Date: 20151207
  Receipt Date: 20151207
  Transmission Date: 20160305
  Serious: No
  Sender: FDA-Public Use
  Company Number: US-ROCHE-1571632

PATIENT
  Sex: Male

DRUGS (2)
  1. TIMOLOL OPHTHALMIC [Concomitant]
     Indication: INTRAOCULAR PRESSURE INCREASED
     Dosage: EYE DROPS
     Route: 047
  2. LUCENTIS [Suspect]
     Active Substance: RANIBIZUMAB
     Indication: EYE HAEMORRHAGE
     Route: 050
     Dates: start: 20150427

REACTIONS (1)
  - Intraocular pressure increased [Not Recovered/Not Resolved]
